FAERS Safety Report 4628222-5 (Version None)
Quarter: 2005Q2

REPORT INFORMATION
  Report Type: 
  Country: None (occurrence: None)
  Receive Date: 20050401
  Receipt Date: 20050317
  Transmission Date: 20051028
  Serious: Yes (Other)
  Sender: FDA-Public Use
  Company Number: USA-2004-0018018

PATIENT
  Age: 24 Year
  Sex: Male

DRUGS (1)
  1. OXYCONTIN [Suspect]
     Indication: PAIN

REACTIONS (6)
  - AGGRESSION [None]
  - ANGER [None]
  - DRUG ABUSER [None]
  - DRUG DEPENDENCE [None]
  - EUPHORIC MOOD [None]
  - SELF INJURIOUS BEHAVIOUR [None]
